FAERS Safety Report 24050204 (Version 3)
Quarter: 2024Q3

REPORT INFORMATION
  Report Type: Report from Study
  Country: US (occurrence: US)
  Receive Date: 20240704
  Receipt Date: 20240806
  Transmission Date: 20241016
  Serious: No
  Sender: ALEXION PHARMACEUTICALS
  Company Number: US-AstraZeneca-CH-00655176A

PATIENT
  Sex: Male
  Weight: 108.84 kg

DRUGS (6)
  1. ULTOMIRIS [Suspect]
     Active Substance: RAVULIZUMAB-CWVZ
     Indication: Myasthenia gravis
     Dosage: UNK
     Route: 065
     Dates: start: 20230303
  2. ULTOMIRIS [Suspect]
     Active Substance: RAVULIZUMAB-CWVZ
     Dosage: UNK
     Route: 065
     Dates: start: 20230316
  3. ULTOMIRIS [Suspect]
     Active Substance: RAVULIZUMAB-CWVZ
     Dosage: UNK
     Route: 065
     Dates: start: 20230509
  4. ULTOMIRIS [Suspect]
     Active Substance: RAVULIZUMAB-CWVZ
     Dosage: UNK, Q7W
     Route: 065
     Dates: start: 202311
  5. CELLCEPT [Concomitant]
     Active Substance: MYCOPHENOLATE MOFETIL
     Indication: Product used for unknown indication
     Dosage: 2000 MILLIGRAM, BID
     Route: 065
  6. PYRIDOSTIGMINE BROMIDE [Concomitant]
     Active Substance: PYRIDOSTIGMINE BROMIDE
     Indication: Product used for unknown indication
     Dosage: 120 MILLIGRAM, Q3H

REACTIONS (12)
  - Muscular weakness [Not Recovered/Not Resolved]
  - Choking sensation [Not Recovered/Not Resolved]
  - Dysphagia [Not Recovered/Not Resolved]
  - Speech disorder [Unknown]
  - Dysphonia [Unknown]
  - Gait disturbance [Unknown]
  - Erythema [Unknown]
  - Tongue movement disturbance [Unknown]
  - Eyelid ptosis [Unknown]
  - Throat tightness [Unknown]
  - Fatigue [Unknown]
  - Therapeutic response shortened [Unknown]
